FAERS Safety Report 20198082 (Version 2)
Quarter: 2021Q4

REPORT INFORMATION
  Report Type: Report from Study
  Country: IT (occurrence: IT)
  Receive Date: 20211217
  Receipt Date: 20211221
  Transmission Date: 20220303
  Serious: No
  Sender: FDA-Public Use
  Company Number: IT-SECURA BIO, INC.-2020IT008536

PATIENT
  Age: 81 Year
  Sex: Male
  Weight: 79 kg

DRUGS (4)
  1. DUVELISIB [Suspect]
     Active Substance: DUVELISIB
     Indication: Follicle centre lymphoma, follicular grade I, II, III recurrent
     Dosage: 25 MG, BID
     Route: 048
     Dates: start: 20200718, end: 20200911
  2. ACYCLOVIR [Concomitant]
     Active Substance: ACYCLOVIR
     Indication: Product used for unknown indication
     Dosage: 400 MG, BID
     Route: 048
     Dates: start: 20200716
  3. BACTRIM [Concomitant]
     Active Substance: SULFAMETHOXAZOLE\TRIMETHOPRIM
     Indication: Product used for unknown indication
     Dosage: TWICE/DAY FOR 2 DAYS/WEEK ORAL
     Route: 048
     Dates: start: 20200716, end: 20201013
  4. LANSOPRAZOLE [Concomitant]
     Active Substance: LANSOPRAZOLE
     Indication: Product used for unknown indication
     Dosage: 30 MG, DAILY
     Route: 048
     Dates: start: 20200716

REACTIONS (1)
  - Febrile neutropenia [Recovered/Resolved]

NARRATIVE: CASE EVENT DATE: 20200917
